FAERS Safety Report 5866218-6 (Version None)
Quarter: 2008Q3

REPORT INFORMATION
  Report Type: 
  Country: None (occurrence: None)
  Receive Date: 20080829
  Receipt Date: 20080820
  Transmission Date: 20090109
  Serious: Yes (Other)
  Sender: FDA-Public Use
  Company Number: US-PFIZER INC-2008069758

PATIENT
  Sex: Male
  Weight: 103 kg

DRUGS (4)
  1. LYRICA [Suspect]
     Indication: DIABETIC NEUROPATHY
  2. METFORMIN HCL [Concomitant]
  3. PRILOSEC [Concomitant]
  4. VALIUM [Concomitant]

REACTIONS (9)
  - ACTIVITIES OF DAILY LIVING IMPAIRED [None]
  - BLOOD IRON DECREASED [None]
  - BLOOD PRESSURE INCREASED [None]
  - DRUG INEFFECTIVE [None]
  - HAEMOGLOBIN DECREASED [None]
  - IMPAIRED DRIVING ABILITY [None]
  - PAIN [None]
  - SOMNOLENCE [None]
  - WEIGHT INCREASED [None]
